FAERS Safety Report 10899131 (Version 5)
Quarter: 2015Q3

REPORT INFORMATION
  Report Type: Report from Study
  Country: NZ (occurrence: NZ)
  Receive Date: 20150309
  Receipt Date: 20150818
  Transmission Date: 20151125
  Serious: No
  Sender: FDA-Public Use
  Company Number: NZ-ABBVIE-15K-118-1356162-00

PATIENT
  Sex: Female
  Weight: 51 kg

DRUGS (1)
  1. HUMIRA [Suspect]
     Active Substance: ADALIMUMAB
     Indication: RHEUMATOID ARTHRITIS
     Route: 058
     Dates: start: 20130723, end: 20150611

REACTIONS (20)
  - Inflammatory marker increased [Unknown]
  - Hyperhidrosis [Not Recovered/Not Resolved]
  - Headache [Recovered/Resolved]
  - Lymphocytic infiltration [Recovered/Resolved]
  - Lip oedema [Unknown]
  - Pallor [Recovered/Resolved]
  - Contusion [Recovering/Resolving]
  - Weight decreased [Unknown]
  - Gastritis [Recovered/Resolved]
  - Pruritus [Recovered/Resolved]
  - Diarrhoea [Recovered/Resolved]
  - Pyrexia [Recovering/Resolving]
  - Headache [Unknown]
  - Hernia [Unknown]
  - Swelling face [Unknown]
  - Rash pruritic [Recovered/Resolved]
  - Eyelid oedema [Unknown]
  - Osteoarthritis [Not Recovered/Not Resolved]
  - Musculoskeletal pain [Unknown]
  - Anxiety [Unknown]

NARRATIVE: CASE EVENT DATE: 2014
